FAERS Safety Report 9359938 (Version 1)
Quarter: 2013Q2

REPORT INFORMATION
  Report Type: Spontaneous
  Country: US (occurrence: None)
  Receive Date: 20130608
  Receipt Date: 20130608
  Transmission Date: 20140414
  Serious: No
  Sender: FDA-Public Use
  Company Number: 2013CT000024

PATIENT
  Sex: Male

DRUGS (1)
  1. KORLYM [Suspect]
     Indication: CUSHING^S SYNDROME

REACTIONS (1)
  - Muscle spasms [None]
